FAERS Safety Report 6120776-5 (Version None)
Quarter: 2009Q1

REPORT INFORMATION
  Report Type: 
  Country: None (occurrence: None)
  Receive Date: 20090317
  Receipt Date: 20090311
  Transmission Date: 20090719
  Serious: Yes (Hospitalization, Other)
  Sender: FDA-Public Use
  Company Number: BE-AVENTIS-200910090EU

PATIENT
  Age: 68 Year
  Sex: Male

DRUGS (4)
  1. CLEXANE [Suspect]
     Indication: PULMONARY EMBOLISM
     Dates: start: 20080226, end: 20080514
  2. FRAXODI [Concomitant]
     Indication: PULMONARY EMBOLISM
     Dates: start: 20080903, end: 20080915
  3. DIURETICS [Concomitant]
  4. SINTROM [Concomitant]
     Indication: PULMONARY EMBOLISM
     Dates: start: 20080511, end: 20080615

REACTIONS (3)
  - FAT EMBOLISM [None]
  - GASTRIC PERFORATION [None]
  - RENAL FAILURE ACUTE [None]
